FAERS Safety Report 5935569-9 (Version None)
Quarter: 2008Q4

REPORT INFORMATION
  Report Type: 
  Country: None (occurrence: None)
  Receive Date: 20081030
  Receipt Date: 20081023
  Transmission Date: 20090506
  Serious: Yes (Death)
  Sender: FDA-Public Use
  Company Number: A0753765A

PATIENT
  Age: 64 Year
  Sex: Male
  Weight: 72.7 kg

DRUGS (2)
  1. TOPOTECAN HYDROCHLORIDE [Suspect]
     Dosage: 2MG PER DAY
     Route: 048
     Dates: start: 20081006, end: 20081017
  2. RADIATION [Suspect]
     Dosage: 3GY PER DAY
     Route: 061
     Dates: start: 20081006, end: 20081017

REACTIONS (3)
  - BRAIN OEDEMA [None]
  - NEUTROPENIA [None]
  - THROMBOCYTOPENIA [None]
